FAERS Safety Report 8009985-8 (Version None)
Quarter: 2011Q4

REPORT INFORMATION
  Report Type: 
  Country: None (occurrence: None)
  Receive Date: 20111221
  Receipt Date: 20111213
  Transmission Date: 20120403
  Serious: Yes (Life-Threatening, Hospitalization, Other)
  Sender: FDA-Public Use
  Company Number: AUR-APL-2011-00982

PATIENT
  Age: 67 Year
  Sex: Female
  Weight: 0.093 kg

DRUGS (7)
  1. IBUPROFEN [Suspect]
     Indication: SPINAL OSTEOARTHRITIS
     Dosage: 400 MG (400 MG, 1 IN 1 D), ORAL
     Route: 048
     Dates: start: 20101103, end: 20101103
  2. AMLODIPINE [Suspect]
     Indication: HYPERTENSION
     Dosage: 5-10 MG DAILY, BREAK; 04-NOV-2010
     Dates: start: 20100923, end: 20101103
  3. RAMIPRIL [Suspect]
     Indication: PRODUCT USED FOR UNKNOWN INDICATION
     Dosage: 10 MG, 05-09 NOV 2010, TWICE DAILY AND 18-29; 2.5 MG (2 NOV 2010 ONCE DAILY (2.5 MG, 2 IN 1 D), ORAL
     Route: 048
     Dates: start: 20101105, end: 20101109
  4. DICLOFENAC SODIUM [Suspect]
     Indication: SPINAL OSTEOARTHRITIS
     Dosage: AS REQUIRED, ORAL
     Route: 048
     Dates: end: 20101102
  5. IBUPROFEN [Suspect]
     Indication: SPINAL OSTEOARTHRITIS
     Dosage: AS REQUIRED, ORAL
     Route: 048
     Dates: end: 20101102
  6. RAMIPRIL [Suspect]
     Indication: PRODUCT USED FOR UNKNOWN INDICATION
     Dosage: 5 MG (2.5 MG, 2 IN 1 D), ORAL
     Route: 048
     Dates: start: 20100923, end: 20101102
  7. AMIODARONE HYDROCHLORIDE [Suspect]
     Indication: ATRIAL FIBRILLATION
     Dosage: 200-600 MG (1 D), ORAL
     Route: 048
     Dates: start: 20101103, end: 20101109

REACTIONS (4)
  - ATRIAL FIBRILLATION [None]
  - RENAL FAILURE ACUTE [None]
  - CHEST PAIN [None]
  - TUBULOINTERSTITIAL NEPHRITIS [None]
